FAERS Safety Report 6635183-6 (Version None)
Quarter: 2010Q1

REPORT INFORMATION
  Report Type: 
  Country: None (occurrence: None)
  Receive Date: 20100312
  Receipt Date: 20100312
  Transmission Date: 20100710
  Serious: Yes (Other)
  Sender: FDA-Public Use
  Company Number: None

PATIENT
  Sex: Female

DRUGS (1)
  1. LAMOTRIGINE [Suspect]
     Indication: EPILEPSY
     Dosage: 500 MG Q12H PO
     Route: 048
     Dates: start: 20100208, end: 20100311

REACTIONS (3)
  - HEADACHE [None]
  - MIGRAINE [None]
  - PRODUCT SUBSTITUTION ISSUE [None]
